FAERS Safety Report 20758098 (Version 1)
Quarter: 2022Q2

REPORT INFORMATION
  Report Type: Spontaneous
  Country: TW (occurrence: TW)
  Receive Date: 20220427
  Receipt Date: 20220427
  Transmission Date: 20220720
  Serious: No
  Sender: FDA-Public Use
  Company Number: TW-LUPIN PHARMACEUTICALS INC.-2022-06150

PATIENT
  Age: 64 Year
  Sex: Female

DRUGS (4)
  1. HYDROXYCHLOROQUINE [Suspect]
     Active Substance: HYDROXYCHLOROQUINE
     Indication: Mixed connective tissue disease
     Dosage: UNK
     Route: 065
  2. CELECOXIB [Suspect]
     Active Substance: CELECOXIB
     Indication: Mixed connective tissue disease
     Dosage: UNK
     Route: 065
  3. ELASOMERAN [Suspect]
     Active Substance: ELASOMERAN
     Indication: COVID-19 immunisation
     Dosage: FIRST DOSE
     Route: 065
     Dates: start: 2021
  4. SULFASALAZINE [Suspect]
     Active Substance: SULFASALAZINE
     Indication: Mixed connective tissue disease
     Dosage: UNK
     Route: 065

REACTIONS (1)
  - Herpes zoster reactivation [Recovered/Resolved]

NARRATIVE: CASE EVENT DATE: 20210101
